FAERS Safety Report 9191051 (Version 2)
Quarter: 2013Q2

REPORT INFORMATION
  Report Type: Spontaneous
  Country: US (occurrence: US)
  Receive Date: 20130326
  Receipt Date: 20130409
  Transmission Date: 20140414
  Serious: No
  Sender: FDA-Public Use
  Company Number: US-VERTEX PHARMACEUTICALS INC.-2013-004048

PATIENT
  Age: 58 Year
  Sex: Female
  Weight: 61 kg

DRUGS (6)
  1. INCIVEK [Suspect]
     Indication: HEPATITIS C
     Dosage: 750 MG, TID
     Route: 048
     Dates: start: 20130302
  2. RIBASPHERE [Suspect]
     Indication: HEPATITIS C
     Dosage: 400 MG, BID
     Route: 048
     Dates: start: 20130302
  3. PEGASYS [Suspect]
     Indication: HEPATITIS C
     Dosage: 180 ?G, QW
     Route: 058
     Dates: start: 20130302
  4. OMEPRAZOLE [Concomitant]
  5. LEXAPRO [Concomitant]
  6. LISINOPRIL [Concomitant]

REACTIONS (1)
  - Rash erythematous [Recovered/Resolved]
